FAERS Safety Report 6288475-7 (Version None)
Quarter: 2009Q3

REPORT INFORMATION
  Report Type: 
  Country: None (occurrence: None)
  Receive Date: 20090729
  Receipt Date: 20090720
  Transmission Date: 20100115
  Serious: Yes (Life-Threatening, Hospitalization, Other)
  Sender: FDA-Public Use
  Company Number: GB-BAYER-200926180GPV

PATIENT
  Age: 70 Year
  Sex: Male

DRUGS (12)
  1. ASPIRIN [Suspect]
     Indication: CHEST PAIN
     Dosage: TOTAL DAILY DOSE: 75 MG
     Route: 048
  2. ASPIRIN [Suspect]
     Route: 048
  3. CLOPIDOGREL [Suspect]
     Indication: DRUG USE FOR UNKNOWN INDICATION
     Route: 065
  4. HEPARIN [Suspect]
     Indication: MYOCARDIAL INFARCTION
     Dosage: 1300 U/HOUR
     Route: 042
  5. HEPARIN [Suspect]
     Route: 040
  6. TENECTEPLASE [Suspect]
     Indication: MYOCARDIAL INFARCTION
     Dosage: UNIT DOSE: 50 MG
     Route: 040
  7. ATENOLOL [Suspect]
     Indication: ACUTE MYOCARDIAL INFARCTION
  8. DOXAZOSIN MESYLATE [Suspect]
     Indication: ACUTE MYOCARDIAL INFARCTION
  9. SIMVASTATIN [Suspect]
     Indication: ACUTE MYOCARDIAL INFARCTION
  10. GLYCERYL TRINITRATE [Concomitant]
     Indication: CHEST PAIN
     Route: 060
  11. MORPHINE [Concomitant]
     Indication: CHEST PAIN
     Route: 042
  12. OXYGEN [Concomitant]
     Indication: CHEST PAIN
     Dosage: HIGH FLOW OXYGEN

REACTIONS (5)
  - ACUTE MYOCARDIAL INFARCTION [None]
  - ELECTROCARDIOGRAM ST SEGMENT ELEVATION [None]
  - HAEMATEMESIS [None]
  - HAEMORRHAGE SUBCUTANEOUS [None]
  - OBSTRUCTIVE AIRWAYS DISORDER [None]
